FAERS Safety Report 7526606 (Version 3)
Quarter: 2013Q2

REPORT INFORMATION
  Report Type: Spontaneous
  Country: US (occurrence: US)
  Receive Date: 20100804
  Receipt Date: 20130606
  Transmission Date: 20140414
  Serious: No
  Sender: FDA-Public Use
  Company Number: US-PFIZER INC-2009205985

PATIENT
  Age: 71 Year
  Sex: Male
  Weight: 109 kg

DRUGS (8)
  1. LYRICA [Suspect]
     Indication: POST HERPETIC NEURALGIA
     Dosage: 300 MG, 3X/DAY
     Route: 048
     Dates: start: 2006
  2. LYRICA [Suspect]
     Indication: HERPES ZOSTER
     Dosage: 300 MG, 2X/DAY
  3. LYRICA [Suspect]
     Dosage: 200 MG, 1X/DAY
  4. LYRICA [Suspect]
     Dosage: 300MG IN THE MORNING AND MIDDAY AND TWO 100MG AT BEDTIME
  5. NEXIUM [Concomitant]
     Dosage: UNK
  6. PROSCAR [Concomitant]
     Dosage: UNK
  7. SINGULAIR [Concomitant]
     Dosage: UNK
  8. LIPITOR [Concomitant]
     Dosage: UNK

REACTIONS (3)
  - Weight increased [Unknown]
  - Post herpetic neuralgia [Unknown]
  - Sexual dysfunction [Unknown]
